FAERS Safety Report 14257247 (Version 1)
Quarter: 2017Q4

REPORT INFORMATION
  Report Type: Report from Study
  Country: US (occurrence: US)
  Receive Date: 20171206
  Receipt Date: 20171206
  Transmission Date: 20180321
  Serious: No
  Sender: FDA-Public Use
  Company Number: PHEH2017US038933

PATIENT
  Age: 29 Year
  Sex: Female

DRUGS (1)
  1. GILENYA [Suspect]
     Active Substance: FINGOLIMOD HYDROCHLORIDE
     Indication: MULTIPLE SCLEROSIS
     Dosage: 0.5 MG, QD
     Route: 048
     Dates: start: 20170801, end: 20170901

REACTIONS (4)
  - Feeling abnormal [Recovered/Resolved]
  - Contusion [Recovered/Resolved]
  - Multiple sclerosis relapse [Unknown]
  - Headache [Unknown]

NARRATIVE: CASE EVENT DATE: 201708
